FAERS Safety Report 24369963 (Version 2)
Quarter: 2024Q4

REPORT INFORMATION
  Report Type: Report from Study
  Country: ZA (occurrence: ZA)
  Receive Date: 20240927
  Receipt Date: 20241025
  Transmission Date: 20250114
  Serious: Yes (Congenital Anomaly)
  Sender: HETERO
  Company Number: ZA-HETERO-HET2024ZA03227

PATIENT
  Sex: Male
  Weight: 2.9 kg

DRUGS (2)
  1. DOLUTEGRAVIR [Suspect]
     Active Substance: DOLUTEGRAVIR
     Indication: Product used for unknown indication
     Dosage: 50 MILLIGRAM, QD
     Route: 064
     Dates: start: 20240703, end: 20240815
  2. DOLUTEGRAVIR\LAMIVUDINE\TENOFOVIR DISOPROXIL FUMARATE [Suspect]
     Active Substance: DOLUTEGRAVIR\LAMIVUDINE\TENOFOVIR DISOPROXIL FUMARATE
     Indication: Product used for unknown indication
     Dosage: 650 MILLIGRAM, QD
     Route: 064
     Dates: start: 2019

REACTIONS (3)
  - Polydactyly [Unknown]
  - Umbilical hernia [Unknown]
  - Foetal exposure during pregnancy [Unknown]
